FAERS Safety Report 5530565-8 (Version None)
Quarter: 2007Q4

REPORT INFORMATION
  Report Type: 
  Country: None (occurrence: None)
  Receive Date: 20071119
  Receipt Date: 20070801
  Transmission Date: 20080405
  Serious: No
  Sender: FDA-Public Use
  Company Number: TPA2007A01706

PATIENT
  Age: 40 Year
  Sex: Female
  Weight: 52.1637 kg

DRUGS (5)
  1. ROZEREM [Suspect]
     Indication: SLEEP DISORDER
     Dosage: 8 MG, QHS, PER ORAL
     Route: 048
     Dates: start: 20070301
  2. PROVIGIL [Suspect]
     Indication: FATIGUE
     Dosage: 200 MG, QAM, PER ORAL
     Route: 048
     Dates: start: 20070309
  3. PROVIGIL [Suspect]
     Indication: MULTIPLE SCLEROSIS
     Dosage: 200 MG, QAM, PER ORAL
     Route: 048
     Dates: start: 20070309
  4. WELLBUTRIN [Suspect]
     Indication: DEPRESSION
     Dosage: 300 MG, 1 IN 1 D, PER ORAL
     Route: 048
     Dates: start: 20061201
  5. WELLBUTRIN [Suspect]
     Indication: FATIGUE
     Dosage: 300 MG, 1 IN 1 D, PER ORAL
     Route: 048
     Dates: start: 20061201

REACTIONS (2)
  - DRUG INTERACTION [None]
  - MOOD ALTERED [None]
